FAERS Safety Report 25177649 (Version 2)
Quarter: 2025Q2

REPORT INFORMATION
  Report Type: Spontaneous
  Country: CN (occurrence: CN)
  Receive Date: 20250409
  Receipt Date: 20250423
  Transmission Date: 20250717
  Serious: No
  Sender: ARGENX BVBA
  Company Number: CN-ARGENX-2025-ARGX-CN004175

PATIENT

DRUGS (2)
  1. VYVGART [Suspect]
     Active Substance: EFGARTIGIMOD ALFA-FCAB
     Indication: Myasthenia gravis
     Dosage: 800 MG, 1/WEEK (EVERY 7 DAYS)
     Route: 042
     Dates: start: 20250315, end: 20250321
  2. TACROLIMUS [Concomitant]
     Active Substance: TACROLIMUS
     Indication: Myasthenia gravis
     Route: 048

REACTIONS (1)
  - Blood immunoglobulin G decreased [Unknown]

NARRATIVE: CASE EVENT DATE: 20250328
